FAERS Safety Report 7243801-7 (Version None)
Quarter: 2011Q1

REPORT INFORMATION
  Report Type: 
  Country: None (occurrence: None)
  Receive Date: 20110125
  Receipt Date: 20110112
  Transmission Date: 20110831
  Serious: Yes (Hospitalization)
  Sender: FDA-Public Use
  Company Number: PHHY2011AT02396

PATIENT
  Sex: Female
  Weight: 68 kg

DRUGS (1)
  1. EBETREXAT [Suspect]
     Indication: SYSTEMIC LUPUS ERYTHEMATOSUS
     Dosage: 0.5 DF, UNK
     Route: 030
     Dates: start: 20100928

REACTIONS (1)
  - INJECTION SITE ABSCESS [None]
